FAERS Safety Report 7587608-X (Version None)
Quarter: 2011Q3

REPORT INFORMATION
  Report Type: 
  Country: None (occurrence: None)
  Receive Date: 20110704
  Receipt Date: 20110621
  Transmission Date: 20111222
  Serious: Yes (Hospitalization)
  Sender: FDA-Public Use
  Company Number: PHHY2011US55535

PATIENT
  Sex: Female

DRUGS (1)
  1. RECLAST [Suspect]
     Indication: SENILE OSTEOPOROSIS
     Dosage: 5 MG
     Route: 042
     Dates: start: 20110616

REACTIONS (2)
  - CHEST PAIN [None]
  - PAIN [None]
